FAERS Safety Report 10051119 (Version 2)
Quarter: 2014Q2

REPORT INFORMATION
  Report Type: Spontaneous
  Country: US (occurrence: US)
  Receive Date: 20140401
  Receipt Date: 20140401
  Transmission Date: 20141212
  Serious: No
  Sender: FDA-Public Use
  Company Number: US-ASTRAZENECA-2012SE34996

PATIENT
  Age: 51 Year
  Sex: Female

DRUGS (2)
  1. NEXIUM [Suspect]
     Indication: GASTROOESOPHAGEAL REFLUX DISEASE
     Route: 048
  2. OMEPRAZOLE [Suspect]
     Route: 048

REACTIONS (7)
  - Quality of life decreased [Unknown]
  - Adverse event [Unknown]
  - Malaise [Unknown]
  - Malaise [Unknown]
  - Disorientation [Unknown]
  - Off label use [Unknown]
  - Drug ineffective [Unknown]
